FAERS Safety Report 22027516 (Version 1)
Quarter: 2023Q1

REPORT INFORMATION
  Report Type: Spontaneous
  Country: US (occurrence: None)
  Receive Date: 20230220
  Receipt Date: 20230220
  Transmission Date: 20230417
  Serious: Yes (Hospitalization)
  Sender: FDA-Public Use
  Company Number: None

PATIENT
  Age: 76 Year
  Sex: Male
  Weight: 87.3 kg

DRUGS (1)
  1. CEFEPIME [Suspect]
     Active Substance: CEFEPIME HYDROCHLORIDE
     Indication: Osteomyelitis
     Dosage: 2 GRAM(S) TWICE A DAY INTRAVENOUS?
     Route: 042
     Dates: start: 20230210, end: 20230218

REACTIONS (1)
  - Toxic encephalopathy [None]

NARRATIVE: CASE EVENT DATE: 20230218
